FAERS Safety Report 24583514 (Version 1)
Quarter: 2024Q4

REPORT INFORMATION
  Report Type: Report from Study
  Country: IT (occurrence: IT)
  Receive Date: 20241106
  Receipt Date: 20241106
  Transmission Date: 20250114
  Serious: Yes (Other)
  Sender: ACCORD
  Company Number: IT-EMA-DD-20241008-7482663-123136

PATIENT
  Age: 83 Year
  Sex: Female

DRUGS (2)
  1. LEVETIRACETAM [Interacting]
     Active Substance: LEVETIRACETAM
     Indication: Epilepsy
     Dosage: 750 MG, BID
  2. RIVAROXABAN [Interacting]
     Active Substance: RIVAROXABAN
     Indication: Anticoagulant therapy
     Dosage: 15 MG, QD

REACTIONS (2)
  - Cerebral haematoma [Unknown]
  - Drug interaction [Unknown]
